FAERS Safety Report 8133828-5 (Version None)
Quarter: 2012Q1

REPORT INFORMATION
  Report Type: 
  Country: None (occurrence: None)
  Receive Date: 20120213
  Receipt Date: 20120213
  Transmission Date: 20120608
  Serious: No
  Sender: FDA-Public Use
  Company Number: None

PATIENT
  Sex: Female
  Weight: 68.038 kg

DRUGS (2)
  1. SIMVASTATIN [Suspect]
     Indication: BLOOD CHOLESTEROL ABNORMAL
     Dosage: 20.0 MG
     Route: 048
     Dates: start: 20110616, end: 20111027
  2. SIMVASTATIN [Suspect]
     Indication: PROPHYLAXIS
     Dosage: 20.0 MG
     Route: 048
     Dates: start: 20110616, end: 20111027

REACTIONS (11)
  - FORMICATION [None]
  - FEELING ABNORMAL [None]
  - SENSATION OF HEAVINESS [None]
  - DIZZINESS [None]
  - NAUSEA [None]
  - TENDON DISORDER [None]
  - BURNING SENSATION [None]
  - MUSCLE SPASMS [None]
  - DRY MOUTH [None]
  - CHROMATURIA [None]
  - DYSGEUSIA [None]
